FAERS Safety Report 16779279 (Version 1)
Quarter: 2019Q3

REPORT INFORMATION
  Report Type: Spontaneous
  Country: US (occurrence: US)
  Receive Date: 20190716
  Receipt Date: 20190716
  Transmission Date: 20191005
  Serious: No
  Sender: FDA-Public Use
  Company Number: None

PATIENT
  Age: 80 Year
  Sex: Female

DRUGS (1)
  1. GLATIRAMER PFS INJ  (30/BOX) [Suspect]
     Active Substance: GLATIRAMER ACETATE
     Route: 058
     Dates: start: 201907

REACTIONS (4)
  - Anxiety [None]
  - Chest pain [None]
  - Dyspnoea [None]
  - Heart rate increased [None]

NARRATIVE: CASE EVENT DATE: 20190716
